FAERS Safety Report 9052545 (Version 1)
Quarter: 2013Q1

REPORT INFORMATION
  Report Type: Spontaneous
  Country: BR (occurrence: BR)
  Receive Date: 20130207
  Receipt Date: 20130207
  Transmission Date: 20140127
  Serious: Yes (Other)
  Sender: FDA-Public Use
  Company Number: PHHY2013BR010479

PATIENT
  Sex: Male
  Weight: 10 kg

DRUGS (1)
  1. CATAFLAM [Suspect]
     Indication: PYREXIA
     Dosage: 10 DRP, TID
     Route: 048

REACTIONS (1)
  - Lung infection [Recovered/Resolved]
